FAERS Safety Report 6767265-2 (Version None)
Quarter: 2010Q2

REPORT INFORMATION
  Report Type: 
  Country: None (occurrence: None)
  Receive Date: 20100614
  Receipt Date: 20100607
  Transmission Date: 20101027
  Serious: Yes (Disabling)
  Sender: FDA-Public Use
  Company Number: CA-ASTRAZENECA-2010SE26329

PATIENT
  Age: 54 Year
  Sex: Male

DRUGS (8)
  1. CRESTOR [Suspect]
     Route: 048
  2. CRESTOR [Suspect]
     Route: 048
  3. CRESTOR [Suspect]
     Route: 048
  4. LIPITOR [Suspect]
     Route: 048
  5. GINKGO BILOBA [Concomitant]
     Route: 065
  6. MEGA AO FORMULA [Concomitant]
     Route: 048
  7. MULLTIMINERAL TABLETS [Concomitant]
     Route: 048
  8. XANAX [Concomitant]
     Route: 065

REACTIONS (4)
  - HYPOAESTHESIA [None]
  - NEUROPATHY PERIPHERAL [None]
  - PAIN IN EXTREMITY [None]
  - PARAESTHESIA [None]
